FAERS Safety Report 16419839 (Version 1)
Quarter: 2019Q2

REPORT INFORMATION
  Report Type: Spontaneous
  Country: SK (occurrence: SK)
  Receive Date: 20190612
  Receipt Date: 20190612
  Transmission Date: 20190711
  Serious: Yes (Other)
  Sender: FDA-Public Use
  Company Number: SK-BIOGEN-2019BI00748569

PATIENT
  Age: 63 Year
  Sex: Female

DRUGS (2)
  1. TYSABRI [Suspect]
     Active Substance: NATALIZUMAB
     Indication: MULTIPLE SCLEROSIS
     Route: 041
     Dates: end: 201808
  2. TYSABRI [Suspect]
     Active Substance: NATALIZUMAB
     Route: 041

REACTIONS (3)
  - Bladder transitional cell carcinoma [Unknown]
  - Haematuria [Unknown]
  - Pyuria [Unknown]

NARRATIVE: CASE EVENT DATE: 201803
